FAERS Safety Report 8443807-6 (Version None)
Quarter: 2012Q2

REPORT INFORMATION
  Report Type: 
  Country: None (occurrence: None)
  Receive Date: 20120618
  Receipt Date: 20120605
  Transmission Date: 20120825
  Serious: Yes (Hospitalization)
  Sender: FDA-Public Use
  Company Number: US-ALVOGEN-2012AL000054

PATIENT
  Age: 58 Year
  Sex: Female
  Weight: 92.5 kg

DRUGS (4)
  1. MACROBID [Suspect]
     Indication: URINARY TRACT INFECTION
     Route: 048
     Dates: start: 20111229, end: 20111230
  2. REMICADE [Suspect]
     Dates: start: 20120424, end: 20120101
  3. REMICADE [Suspect]
     Indication: PSORIATIC ARTHROPATHY
     Dates: start: 20111001
  4. CIPROFLOXACIN [Suspect]
     Indication: URINARY TRACT INFECTION
     Route: 065
     Dates: start: 20111230

REACTIONS (6)
  - VOMITING [None]
  - NAUSEA [None]
  - BACK PAIN [None]
  - PAIN [None]
  - CHOLELITHIASIS [None]
  - UMBILICAL HERNIA [None]
